FAERS Safety Report 24119445 (Version 1)
Quarter: 2024Q3

REPORT INFORMATION
  Report Type: Spontaneous
  Country: US (occurrence: None)
  Receive Date: 20240718
  Receipt Date: 20240718
  Transmission Date: 20241016
  Serious: No
  Sender: Public
  Company Number: None

PATIENT
  Sex: Female

DRUGS (2)
  1. RASUVO [Suspect]
     Active Substance: METHOTREXATE SODIUM
     Indication: Spinal osteoarthritis
     Dosage: 15MG ONCE EVERY WEEK UNDER THE SKIN
     Route: 058
     Dates: start: 202204
  2. CIMZIA [Concomitant]
     Active Substance: CERTOLIZUMAB PEGOL

REACTIONS (4)
  - Joint swelling [None]
  - Arthralgia [None]
  - Onychomadesis [None]
  - Condition aggravated [None]
